FAERS Safety Report 19619974 (Version 1)
Quarter: 2021Q3

REPORT INFORMATION
  Report Type: Spontaneous
  Country: US (occurrence: US)
  Receive Date: 20210727
  Receipt Date: 20210727
  Transmission Date: 20211014
  Serious: No
  Sender: FDA-Public Use
  Company Number: None

PATIENT
  Age: 87 Year
  Sex: Male
  Weight: 72.57 kg

DRUGS (1)
  1. WARFARIN [Suspect]
     Active Substance: WARFARIN
     Indication: DEEP VEIN THROMBOSIS
     Route: 048
     Dates: start: 20210129, end: 20210318

REACTIONS (5)
  - Haemoglobin decreased [None]
  - Gastric haemorrhage [None]
  - International normalised ratio decreased [None]
  - Deep vein thrombosis [None]
  - Fall [None]

NARRATIVE: CASE EVENT DATE: 20210209
